FAERS Safety Report 8255704-X (Version None)
Quarter: 2012Q2

REPORT INFORMATION
  Report Type: 
  Country: None (occurrence: None)
  Receive Date: 20120403
  Receipt Date: 20120403
  Transmission Date: 20120825
  Serious: Yes (Other)
  Sender: FDA-Public Use
  Company Number: None

PATIENT
  Age: 28 Year
  Sex: Male
  Weight: 79.378 kg

DRUGS (5)
  1. AZITHROMYCIN [Concomitant]
  2. HYDROCODONE/CHLORPHENIRAINE ER [Concomitant]
  3. TAMIFLU [Suspect]
     Indication: INFLUENZA
     Dosage: 75MG
     Route: 048
     Dates: start: 20120329, end: 20120401
  4. HYDROCODONE/CHLORPHENIRAINE ER [Concomitant]
  5. AZITHROMYCIN [Concomitant]

REACTIONS (9)
  - PARAESTHESIA ORAL [None]
  - TACHYCARDIA [None]
  - HEART RATE ABNORMAL [None]
  - PRURITUS [None]
  - BLOOD PRESSURE INCREASED [None]
  - ANXIETY [None]
  - DRUG HYPERSENSITIVITY [None]
  - MUSCLE TIGHTNESS [None]
  - EXTRASYSTOLES [None]
